FAERS Safety Report 13880746 (Version 2)
Quarter: 2017Q4

REPORT INFORMATION
  Report Type: Spontaneous
  Country: US (occurrence: US)
  Receive Date: 20170818
  Receipt Date: 20171010
  Transmission Date: 20180320
  Serious: Yes (Other)
  Sender: FDA-Public Use
  Company Number: US-SA-2017SA146444

PATIENT
  Age: 6 Year
  Sex: Male
  Weight: 19.95 kg

DRUGS (2)
  1. CHILDRENS XYZAL ALLERGY 24HR [Suspect]
     Active Substance: LEVOCETIRIZINE DIHYDROCHLORIDE
     Indication: MULTIPLE ALLERGIES
     Dosage: IN THE EVENING
     Route: 048
     Dates: start: 20170719, end: 20170726
  2. CHILDRENS XYZAL ALLERGY 24HR [Suspect]
     Active Substance: LEVOCETIRIZINE DIHYDROCHLORIDE
     Indication: SEASONAL ALLERGY
     Dosage: IN THE EVENING
     Route: 048
     Dates: start: 20170719, end: 20170726

REACTIONS (7)
  - Abnormal sensation in eye [Recovered/Resolved]
  - Fall [Recovered/Resolved]
  - Head injury [Not Recovered/Not Resolved]
  - Seizure [Recovered/Resolved]
  - Dizziness [Recovered/Resolved]
  - Loss of consciousness [Recovered/Resolved]
  - Somnolence [Recovered/Resolved]

NARRATIVE: CASE EVENT DATE: 20170727
